FAERS Safety Report 6056503-X (Version None)
Quarter: 2009Q1

REPORT INFORMATION
  Report Type: 
  Country: None (occurrence: None)
  Receive Date: 20090126
  Receipt Date: 20090126
  Transmission Date: 20090719
  Serious: Yes (Life-Threatening, Hospitalization)
  Sender: FDA-Public Use
  Company Number: None

PATIENT
  Age: 65 Year
  Sex: Female
  Weight: 83.9154 kg

DRUGS (2)
  1. CELEBREX [Suspect]
     Indication: NERVE COMPRESSION
     Dosage: ONE CAPSULE DAILY ORAL APPROX 11/21 - 12/18 OR 19/2008
     Route: 048
  2. CELEBREX [Suspect]
     Indication: PAIN
     Dosage: ONE CAPSULE DAILY ORAL APPROX 11/21 - 12/18 OR 19/2008
     Route: 048

REACTIONS (1)
  - TRANSIENT ISCHAEMIC ATTACK [None]
